FAERS Safety Report 5073135-0 (Version None)
Quarter: 2006Q3

REPORT INFORMATION
  Report Type: 
  Country: None (occurrence: None)
  Receive Date: 20060711
  Receipt Date: 20060331
  Transmission Date: 20061208
  Serious: No
  Sender: FDA-Public Use
  Company Number: 2006S1000068

PATIENT
  Age: 56 Year
  Sex: Male
  Weight: 113 kg

DRUGS (1)
  1. CUBICIN [Suspect]
     Indication: CELLULITIS STAPHYLOCOCCAL
     Dosage: 4 MG/KG;Q24H;IV
     Route: 042
     Dates: start: 20050809, end: 20050926

REACTIONS (1)
  - CELLULITIS [None]
